FAERS Safety Report 18122791 (Version 3)
Quarter: 2020Q3

REPORT INFORMATION
  Report Type: Spontaneous
  Country: PT (occurrence: PT)
  Receive Date: 20200807
  Receipt Date: 20200825
  Transmission Date: 20201103
  Serious: Yes (Hospitalization, Other)
  Sender: FDA-Public Use
  Company Number: PT-MYLANLABS-2020M1070386

PATIENT
  Age: 76 Year
  Sex: Male

DRUGS (6)
  1. CYANOCOBALAMIN. [Concomitant]
     Active Substance: CYANOCOBALAMIN
     Dosage: 1 INJECTION PER WEEK
     Route: 065
  2. LEVETIRACETAM. [Concomitant]
     Active Substance: LEVETIRACETAM
     Dosage: 1G 12H/12H
     Route: 065
  3. METFORMIN [Suspect]
     Active Substance: METFORMIN HYDROCHLORIDE
     Dosage: 2 MILLIGRAM, QD
     Route: 048
  4. ACICLOVIR [Concomitant]
     Active Substance: ACYCLOVIR
     Indication: MENINGITIS VIRAL
     Dosage: 10 MG/KG (850 MG)
     Route: 065
  5. METFORMIN [Suspect]
     Active Substance: METFORMIN HYDROCHLORIDE
     Indication: TYPE 2 DIABETES MELLITUS
     Dosage: 2 GRAM, QD
     Route: 065
  6. FERROUS SULFATE. [Concomitant]
     Active Substance: FERROUS SULFATE
     Dosage: 329.7 MG/DAY
     Route: 065

REACTIONS (7)
  - Agitation [Recovered/Resolved]
  - Vitamin B12 deficiency [Recovering/Resolving]
  - Epilepsy [Recovered/Resolved]
  - Pernicious anaemia [Unknown]
  - Vitamin B12 decreased [Recovered/Resolved]
  - Delirium [Recovered/Resolved]
  - Generalised tonic-clonic seizure [Recovering/Resolving]
